FAERS Safety Report 7068171-9 (Version None)
Quarter: 2010Q4

REPORT INFORMATION
  Report Type: 
  Country: None (occurrence: None)
  Receive Date: 20101028
  Receipt Date: 20101026
  Transmission Date: 20110411
  Serious: Yes (Hospitalization, Other)
  Sender: FDA-Public Use
  Company Number: DE-ROCHE-705378

PATIENT
  Sex: Female
  Weight: 62 kg

DRUGS (3)
  1. XELODA [Suspect]
     Dosage: AS MONOTHERAPY UNTIL PROGRESSION
     Route: 048
     Dates: start: 20090831
  2. HERCEPTIN [Suspect]
     Route: 042
     Dates: start: 20100406
  3. MCP [Concomitant]
     Indication: ANTIEMETIC SUPPORTIVE CARE
     Route: 048
     Dates: start: 20091006

REACTIONS (3)
  - CONJUNCTIVITIS [None]
  - MALIGNANT NEOPLASM PROGRESSION [None]
  - SALIVARY GLAND CANCER [None]
